FAERS Safety Report 7253522-2 (Version None)
Quarter: 2011Q1

REPORT INFORMATION
  Report Type: 
  Country: None (occurrence: None)
  Receive Date: 20110129
  Receipt Date: 20100218
  Transmission Date: 20110831
  Serious: Yes (Hospitalization)
  Sender: FDA-Public Use
  Company Number: US-ABBOTT-10P-163-0627387-00

PATIENT
  Sex: Male
  Weight: 68.1 kg

DRUGS (8)
  1. LIPITOR [Concomitant]
     Indication: BLOOD CHOLESTEROL INCREASED
     Route: 048
  2. LIALDA [Concomitant]
     Indication: CROHN'S DISEASE
     Route: 048
     Dates: start: 20090101
  3. LOTREL [Concomitant]
     Indication: CARDIAC DISORDER
     Dosage: 10-20MG
     Route: 048
  4. BISOPROLOL [Concomitant]
     Indication: CARDIAC DISORDER
     Route: 048
  5. HUMIRA [Suspect]
     Indication: CROHN'S DISEASE
     Route: 058
     Dates: start: 20090701, end: 20091101
  6. HUMIRA [Suspect]
     Route: 058
     Dates: start: 20100101
  7. ASPIRIN [Concomitant]
     Indication: CARDIAC DISORDER
     Route: 048
  8. OMEPRAZOLE [Concomitant]
     Indication: GASTROOESOPHAGEAL REFLUX DISEASE
     Route: 048

REACTIONS (2)
  - DIVERTICULITIS [None]
  - CROHN'S DISEASE [None]
